FAERS Safety Report 5700756-1 (Version None)
Quarter: 2008Q2

REPORT INFORMATION
  Report Type: 
  Country: None (occurrence: None)
  Receive Date: 20080409
  Receipt Date: 20080409
  Transmission Date: 20081010
  Serious: Yes (Other)
  Sender: FDA-Public Use
  Company Number: None

PATIENT
  Sex: Male

DRUGS (1)
  1. CIALIS [Suspect]
     Dates: start: 20070110, end: 20080408

REACTIONS (3)
  - EYE DISORDER [None]
  - EYE INFLAMMATION [None]
  - WRONG TECHNIQUE IN DRUG USAGE PROCESS [None]
